FAERS Safety Report 4642158-5 (Version None)
Quarter: 2005Q2

REPORT INFORMATION
  Report Type: 
  Country: None (occurrence: None)
  Receive Date: 20050421
  Receipt Date: 20050405
  Transmission Date: 20051028
  Serious: Yes (Other)
  Sender: FDA-Public Use
  Company Number: 2005054585

PATIENT
  Age: 45 Year
  Sex: Female
  Weight: 57.1532 kg

DRUGS (1)
  1. EMETROL (GLUCOSE, FRUCTOSE, PHOSPHORIC ACID) [Suspect]
     Indication: NAUSEA
     Dosage: 1-2 TABLESPOONS EVERY 2 HOURS, ORAL
     Route: 048
     Dates: start: 20050331, end: 20050403

REACTIONS (8)
  - ASTHENIA [None]
  - BLOOD POTASSIUM DECREASED [None]
  - CONDITION AGGRAVATED [None]
  - DEHYDRATION [None]
  - NAUSEA [None]
  - POOR QUALITY DRUG ADMINISTERED [None]
  - VISION BLURRED [None]
  - VOMITING [None]
